FAERS Safety Report 14305265 (Version 1)
Quarter: 2017Q4

REPORT INFORMATION
  Report Type: Spontaneous
  Country: ES (occurrence: ES)
  Receive Date: 20171219
  Receipt Date: 20171219
  Transmission Date: 20180321
  Serious: Yes (Death)
  Sender: FDA-Public Use
  Company Number: ES-OTSUKA-DJ20061552

PATIENT
  Age: 35 Year
  Sex: Female
  Weight: 90 kg

DRUGS (3)
  1. ABILIFY [Suspect]
     Active Substance: ARIPIPRAZOLE
     Dosage: 20 MG, UNK
     Route: 048
     Dates: start: 200504, end: 200605
  2. ABILIFY [Suspect]
     Active Substance: ARIPIPRAZOLE
     Indication: SCHIZOPHRENIA
     Dosage: 20 MG, UNK
     Route: 048
     Dates: start: 200312, end: 200405
  3. CLOPIXOL [Suspect]
     Active Substance: ZUCLOPENTHIXOL ACETATE
     Indication: PRODUCT USED FOR UNKNOWN INDICATION
     Dosage: 10 TO 20 DROPS
     Route: 065
     Dates: start: 20050510, end: 200605

REACTIONS (5)
  - Abnormal behaviour [Fatal]
  - Psychotic disorder [Unknown]
  - Completed suicide [Fatal]
  - Depression [Fatal]
  - Psychotic behaviour [Fatal]

NARRATIVE: CASE EVENT DATE: 200604
